FAERS Safety Report 17113959 (Version 1)
Quarter: 2019Q4

REPORT INFORMATION
  Report Type: Spontaneous
  Country: US (occurrence: US)
  Receive Date: 20191205
  Receipt Date: 20191205
  Transmission Date: 20200122
  Serious: No
  Sender: FDA-Public Use
  Company Number: US-UNITED THERAPEUTICS-UNT-2019-019827

PATIENT
  Age: 74 Year
  Sex: Female
  Weight: 79.82 kg

DRUGS (2)
  1. TYVASO [Suspect]
     Active Substance: TREPROSTINIL
     Indication: PULMONARY ARTERIAL HYPERTENSION
     Dosage: 60-120 ?G, QID
     Dates: start: 20180412
  2. TADALAFIL. [Concomitant]
     Active Substance: TADALAFIL
     Indication: PRODUCT USED FOR UNKNOWN INDICATION
     Dosage: UNK
     Route: 065

REACTIONS (11)
  - Rhinorrhoea [Unknown]
  - Sneezing [Unknown]
  - Off label use [Unknown]
  - Respiratory tract congestion [Unknown]
  - Ocular hyperaemia [Unknown]
  - Lacrimation increased [Unknown]
  - Respiratory syncytial virus infection [Unknown]
  - Hot flush [Unknown]
  - Seasonal allergy [Unknown]
  - Eyelid skin dryness [Unknown]
  - Flushing [Unknown]

NARRATIVE: CASE EVENT DATE: 20180412
